FAERS Safety Report 5893182-6 (Version None)
Quarter: 2008Q3

REPORT INFORMATION
  Report Type: 
  Country: None (occurrence: None)
  Receive Date: 20080923
  Receipt Date: 20080205
  Transmission Date: 20090109
  Serious: No
  Sender: FDA-Public Use
  Company Number: US-ASTRAZENECA-2007UW17083

PATIENT
  Age: 33 Year
  Sex: Male
  Weight: 140.9 kg

DRUGS (5)
  1. SEROQUEL [Suspect]
     Indication: INSOMNIA
     Dosage: 600-800 MG DAILY
     Route: 048
     Dates: start: 20011130
  2. SEROQUEL [Suspect]
     Indication: SCHIZOPHRENIA, PARANOID TYPE
     Dosage: 600-800 MG DAILY
     Route: 048
     Dates: start: 20011130
  3. RISPERDAL [Concomitant]
     Dosage: 6 TO 8 MG
     Dates: start: 19950601, end: 20020101
  4. ZOLOFT [Concomitant]
     Dates: start: 19960401, end: 20070101
  5. WELLBUTRIN [Concomitant]
     Dosage: 20 MG, 30 MG, 75 MG AND 150 MG
     Dates: start: 19991001

REACTIONS (4)
  - BLOOD CHOLESTEROL INCREASED [None]
  - HEPATIC STEATOSIS [None]
  - HYPERTENSION [None]
  - TYPE 2 DIABETES MELLITUS [None]
